FAERS Safety Report 6524202-3 (Version None)
Quarter: 2009Q4

REPORT INFORMATION
  Report Type: 
  Country: None (occurrence: None)
  Receive Date: 20091230
  Receipt Date: 20091230
  Transmission Date: 20100525
  Serious: No
  Sender: FDA-Public Use
  Company Number: None

PATIENT
  Age: 50 Year
  Sex: Male
  Weight: 77.1115 kg

DRUGS (3)
  1. COLD REMEDY GEL SWABS [Suspect]
     Indication: OROPHARYNGEAL PAIN
     Dosage: QD FOR 5 DAYS 06/2009- 4/5 DAYS LATER
     Dates: start: 20090601
  2. COLD REMEDY GEL SWABS [Suspect]
     Indication: RHINORRHOEA
     Dosage: QD FOR 5 DAYS 06/2009- 4/5 DAYS LATER
     Dates: start: 20090601
  3. CENTRUM MULTIVITAMIN [Concomitant]

REACTIONS (1)
  - ANOSMIA [None]
